FAERS Safety Report 6959026-6 (Version None)
Quarter: 2010Q3

REPORT INFORMATION
  Report Type: 
  Country: None (occurrence: None)
  Receive Date: 20100831
  Receipt Date: 20100817
  Transmission Date: 20110219
  Serious: Yes (Death)
  Sender: FDA-Public Use
  Company Number: US-MYLANLABS-2010S1014961

PATIENT
  Age: 18 Year
  Sex: Male

DRUGS (1)
  1. MERCAPTOPURINE [Suspect]
     Indication: CROHN'S DISEASE
     Dosage: 25MG ALTERNATING WITH 50MG EVERY OTHER DAY
     Route: 065

REACTIONS (1)
  - HEPATOSPLENIC T-CELL LYMPHOMA [None]
